FAERS Safety Report 22389450 (Version 1)
Quarter: 2023Q2

REPORT INFORMATION
  Report Type: Spontaneous
  Country: US (occurrence: None)
  Receive Date: 20230530
  Receipt Date: 20230530
  Transmission Date: 20230722
  Serious: Yes (Death)
  Sender: FDA-Public Use
  Company Number: None

PATIENT
  Age: 78 Year
  Sex: Female

DRUGS (19)
  1. SUNITINIB [Suspect]
     Active Substance: SUNITINIB
     Indication: Gastrointestinal stromal tumour
     Dosage: FREQUENCY : DAILY;?
     Route: 048
  2. TRAMADOL [Concomitant]
  3. XYZAL [Concomitant]
     Active Substance: LEVOCETIRIZINE DIHYDROCHLORIDE
  4. SIMVASTATIN [Concomitant]
  5. ALLOPURINOL [Concomitant]
     Active Substance: ALLOPURINOL
  6. NITROGLYCERIN [Concomitant]
     Active Substance: NITROGLYCERIN
  7. METOPROLOL [Concomitant]
     Active Substance: METOPROLOL
  8. LISINOPRIL [Concomitant]
     Active Substance: LISINOPRIL
  9. ONDANSETRON [Concomitant]
     Active Substance: ONDANSETRON
  10. COLACE [Concomitant]
  11. ASCORBIC ACID [Concomitant]
  12. VITAMIN D [Concomitant]
  13. ZINC [Concomitant]
  14. AMOXICILLIN [Concomitant]
     Active Substance: AMOXICILLIN
  15. SYSTANE (HYPROMELLOSE 2910 (4000 MPA.S)) [Concomitant]
     Active Substance: HYPROMELLOSE 2910 (4000 MPA.S)
  16. ACETAMINOPHEN [Concomitant]
     Active Substance: ACETAMINOPHEN
  17. LEXAPRO [Concomitant]
     Active Substance: ESCITALOPRAM OXALATE
  18. LEVOTHYROXINE [Concomitant]
  19. KETOCONAZOLE [Concomitant]
     Active Substance: KETOCONAZOLE

REACTIONS (1)
  - Death [None]

NARRATIVE: CASE EVENT DATE: 20230529
